FAERS Safety Report 12443014 (Version 1)
Quarter: 2016Q2

REPORT INFORMATION
  Report Type: Spontaneous
  Country: None (occurrence: None)
  Receive Date: 20160606
  Receipt Date: 20160606
  Transmission Date: 20160815
  Serious: No
  Sender: FDA-Public Use
  Company Number: None

PATIENT
  Sex: Female

DRUGS (3)
  1. LANTUS [Suspect]
     Active Substance: INSULIN GLARGINE
  2. METFORMIN [Suspect]
     Active Substance: METFORMIN HYDROCHLORIDE
  3. GLUCOTROL [Suspect]
     Active Substance: GLIPIZIDE

REACTIONS (7)
  - Blood glucose decreased [None]
  - Pain [None]
  - Blood glucose increased [None]
  - Colitis [None]
  - Influenza [None]
  - Weight decreased [None]
  - Tremor [None]
